FAERS Safety Report 5287571-0 (Version None)
Quarter: 2007Q1

REPORT INFORMATION
  Report Type: 
  Country: None (occurrence: None)
  Receive Date: 20070126
  Receipt Date: 20050615
  Transmission Date: 20070707
  Serious: No
  Sender: FDA-Public Use
  Company Number: 2006CT001098

PATIENT
  Age: 51 Year
  Sex: Female
  Weight: 138.8007 kg

DRUGS (22)
  1. VENTAVIS [Suspect]
     Indication: PULMONARY HYPERTENSION
     Dosage: 5;UG; 6XD; INH
     Route: 055
     Dates: start: 20050428, end: 20050614
  2. PLAQUENIL [Concomitant]
  3. LASIX [Concomitant]
  4. SYNTHROID [Concomitant]
  5. KLOR-CON [Concomitant]
  6. FLEXERIL [Concomitant]
  7. WARFARIN [Concomitant]
  8. OXYBUTYNIN HYDROCHHLORIDE [Concomitant]
  9. NEUTONTIN [Concomitant]
  10. CELEBREX [Concomitant]
  11. FOLIC ACID [Concomitant]
  12. PREDNISONE TAB [Concomitant]
  13. OXYCONTIN [Concomitant]
  14. COLCHICINE [Concomitant]
  15. ALBUTEROL [Concomitant]
  16. LIDODERM [Concomitant]
  17. SINGULAIR [Concomitant]
  18. PREVACID [Concomitant]
  19. IMURAN [Concomitant]
  20. TRACLEER [Concomitant]
  21. EVOXAC [Concomitant]
  22. ADVAIR DISKUS 100/50 [Concomitant]

REACTIONS (2)
  - LUNG DISORDER [None]
  - OXYGEN SATURATION DECREASED [None]
